FAERS Safety Report 13386022 (Version 1)
Quarter: 2017Q1

REPORT INFORMATION
  Report Type: Spontaneous
  Country: US (occurrence: US)
  Receive Date: 20170330
  Receipt Date: 20170330
  Transmission Date: 20170429
  Serious: No
  Sender: FDA-Public Use
  Company Number: US-BAUSCH-BL-2017-003443

PATIENT
  Age: 62 Year
  Sex: Female

DRUGS (1)
  1. JUBLIA [Suspect]
     Active Substance: EFINACONAZOLE
     Indication: PRODUCT USED FOR UNKNOWN INDICATION
     Dosage: APPLY ONCE DAILY TO EACH OF HER FINGERNAILS
     Route: 061
     Dates: start: 20170126

REACTIONS (3)
  - Drug administered at inappropriate site [Unknown]
  - No adverse event [Unknown]
  - Product quality issue [Unknown]
